FAERS Safety Report 21354157 (Version 1)
Quarter: 2022Q3

REPORT INFORMATION
  Report Type: Spontaneous
  Country: US (occurrence: None)
  Receive Date: 20220919
  Receipt Date: 20220919
  Transmission Date: 20221027
  Serious: Yes (Other)
  Sender: FDA-Public Use
  Company Number: None

PATIENT
  Age: 59 Year
  Sex: Male
  Weight: 80 kg

DRUGS (8)
  1. EVUSHELD [Suspect]
     Active Substance: CILGAVIMAB\TIXAGEVIMAB
  2. MYFORTIC [Concomitant]
     Active Substance: MYCOPHENOLATE SODIUM
  3. PROGRAF [Concomitant]
     Active Substance: TACROLIMUS
  4. UNSPECIFIED INGREDIENT [Concomitant]
     Active Substance: UNSPECIFIED INGREDIENT
  5. METFORMIN [Concomitant]
     Active Substance: METFORMIN HYDROCHLORIDE
  6. AMLODIPINE BESYLATE [Concomitant]
     Active Substance: AMLODIPINE BESYLATE
  7. Atrovastin [Concomitant]
  8. HUMALOG [Concomitant]
     Active Substance: INSULIN LISPRO

REACTIONS (4)
  - Palpitations [None]
  - Heart rate irregular [None]
  - Cardiac arrest [None]
  - Dyspepsia [None]

NARRATIVE: CASE EVENT DATE: 20220912
